FAERS Safety Report 9304963 (Version 2)
Quarter: 2013Q2

REPORT INFORMATION
  Report Type: Spontaneous
  Country: US (occurrence: None)
  Receive Date: 20130521
  Receipt Date: 20130606
  Transmission Date: 20140414
  Serious: Yes (Death)
  Sender: FDA-Public Use
  Company Number: USA/USA/13/0029615

PATIENT
  Age: 16 Year
  Sex: Male
  Weight: 68.49 kg

DRUGS (2)
  1. AMOXICILLIN [Suspect]
     Indication: TOOTH INFECTION
     Dates: start: 200906
  2. LORTAB (VICODIN) [Concomitant]

REACTIONS (21)
  - Eosinophilic myocarditis [None]
  - Cough [None]
  - Oropharyngeal pain [None]
  - Rash [None]
  - Rash [None]
  - Lymphadenopathy [None]
  - Urticaria [None]
  - Fall [None]
  - Cyanosis [None]
  - Blood pressure decreased [None]
  - Heart rate increased [None]
  - Aggression [None]
  - Pulse absent [None]
  - Pulmonary oedema [None]
  - Hepatomegaly [None]
  - Splenomegaly [None]
  - Cardiomegaly [None]
  - Pericardial effusion [None]
  - Stenotrophomonas test positive [None]
  - Pulmonary congestion [None]
  - Micrococcus test positive [None]
